FAERS Safety Report 23797916 (Version 3)
Quarter: 2024Q3

REPORT INFORMATION
  Report Type: Report from Study
  Country: GB (occurrence: GB)
  Receive Date: 20240430
  Receipt Date: 20240711
  Transmission Date: 20241017
  Serious: Yes (Hospitalization)
  Sender: ACCORD
  Company Number: GB-Accord-421078

PATIENT
  Age: 78 Year
  Sex: Male

DRUGS (1)
  1. PIRFENIDONE [Suspect]
     Active Substance: PIRFENIDONE
     Indication: Product used for unknown indication
     Dosage: FREQUENCY: 3 PER DAY
     Dates: start: 202308

REACTIONS (6)
  - Pneumonia [Unknown]
  - Rib fracture [Unknown]
  - Traumatic lung injury [Unknown]
  - Fall [Unknown]
  - Paraesthesia [Unknown]
  - Cataract [Unknown]
